FAERS Safety Report 7108460-2 (Version None)
Quarter: 2010Q4

REPORT INFORMATION
  Report Type: 
  Country: None (occurrence: None)
  Receive Date: 20101117
  Receipt Date: 20101108
  Transmission Date: 20110411
  Serious: Yes (Life-Threatening)
  Sender: FDA-Public Use
  Company Number: B0684676A

PATIENT
  Sex: Female

DRUGS (4)
  1. AUGMENTIN '125' [Suspect]
     Indication: TOOTHACHE
     Dosage: 3TAB PER DAY
     Route: 048
     Dates: start: 20100828, end: 20100829
  2. TORADOL [Suspect]
     Indication: TOOTHACHE
     Dosage: 30DROP PER DAY
     Route: 048
     Dates: start: 20100829, end: 20100829
  3. OKI [Concomitant]
     Dosage: 1UNIT PER DAY
     Route: 048
     Dates: start: 20100827, end: 20100829
  4. NIMESULIDE [Concomitant]
     Dosage: 1UNIT PER DAY
     Route: 048
     Dates: start: 20100828, end: 20100828

REACTIONS (3)
  - DIZZINESS [None]
  - DYSPNOEA [None]
  - FATIGUE [None]
